FAERS Safety Report 18092631 (Version 1)
Quarter: 2020Q3

REPORT INFORMATION
  Report Type: Spontaneous
  Country: US (occurrence: US)
  Receive Date: 20200730
  Receipt Date: 20200730
  Transmission Date: 20201103
  Serious: Yes (Hospitalization, Other)
  Sender: FDA-Public Use
  Company Number: None

PATIENT
  Age: 54 Year
  Sex: Female
  Weight: 95.3 kg

DRUGS (4)
  1. LEVETIRACETAM FROM AUROBINDO [Concomitant]
     Dates: start: 20190504, end: 20200612
  2. LEVETIRACETAM FROM LUPIN [Concomitant]
     Dates: start: 20200612, end: 20200725
  3. LEVETIRACETAM FROM SOLCO [Concomitant]
     Dates: start: 20190324, end: 20190504
  4. LEVETIRACETAM. [Suspect]
     Active Substance: LEVETIRACETAM

REACTIONS (2)
  - Seizure cluster [None]
  - Drug ineffective [None]

NARRATIVE: CASE EVENT DATE: 20190529
